FAERS Safety Report 11445118 (Version 1)
Quarter: 2015Q3

REPORT INFORMATION
  Report Type: Spontaneous
  Country: US (occurrence: None)
  Receive Date: 20150901
  Receipt Date: 20150901
  Transmission Date: 20151125
  Serious: No
  Sender: FDA-Public Use
  Company Number: None

PATIENT
  Age: 10 Year
  Sex: Male
  Weight: 45.36 kg

DRUGS (4)
  1. GUANFACINE HCL [Suspect]
     Active Substance: GUANFACINE HYDROCHLORIDE
     Indication: IMPULSIVE BEHAVIOUR
     Route: 048
     Dates: start: 20150727, end: 20150831
  2. DEXEDRINE [Concomitant]
     Active Substance: DEXTROAMPHETAMINE SULFATE
  3. FLINSTONE VITAMINS [Concomitant]
  4. GUANFACINE HCL [Suspect]
     Active Substance: GUANFACINE HYDROCHLORIDE
     Indication: ATTENTION DEFICIT/HYPERACTIVITY DISORDER
     Route: 048
     Dates: start: 20150727, end: 20150831

REACTIONS (4)
  - Product quality issue [None]
  - Condition aggravated [None]
  - Product substitution issue [None]
  - Impulsive behaviour [None]

NARRATIVE: CASE EVENT DATE: 20150615
